FAERS Safety Report 5203706-X (Version None)
Quarter: 2007Q1

REPORT INFORMATION
  Report Type: 
  Country: None (occurrence: None)
  Receive Date: 20070109
  Receipt Date: 20070109
  Transmission Date: 20070707
  Serious: No
  Sender: FDA-Public Use
  Company Number: None

PATIENT

DRUGS (1)
  1. COUGH FORMULA DM DISTRIBUTED BY TARGET [Suspect]
     Indication: COUGH
     Dosage: 2 TEASPOONS INSTEAD TOOK 2 TBL

REACTIONS (3)
  - INCORRECT DOSE ADMINISTERED [None]
  - MEDICATION ERROR [None]
  - PHARMACEUTICAL PRODUCT COMPLAINT [None]
